FAERS Safety Report 12111721 (Version 2)
Quarter: 2016Q1

REPORT INFORMATION
  Report Type: Not Available
  Country: AU (occurrence: AU)
  Receive Date: 20160224
  Receipt Date: 20160302
  Transmission Date: 20160526
  Serious: Yes (Death, Life-Threatening)
  Sender: FDA-Public Use
  Company Number: AU-MUNDIPHARMA DS AND PHARMACOVIGILANCE-GBR-2016-0034195

PATIENT
  Age: 51 Year
  Sex: Male

DRUGS (14)
  1. OXYCODONE HCL IR CAPSULE [Suspect]
     Active Substance: OXYCODONE HYDROCHLORIDE
     Indication: BREAKTHROUGH PAIN
     Dosage: UNK, PRN
     Route: 048
     Dates: end: 20150904
  2. MORPHINE SULFATE. [Suspect]
     Active Substance: MORPHINE SULFATE
     Dosage: 80 MG, DAILY
     Route: 058
     Dates: start: 201509
  3. PREGABALIN. [Concomitant]
     Active Substance: PREGABALIN
     Dosage: 225 MG, DAILY (75MG MANE AND 150MG NOCTE)
     Dates: end: 201509
  4. DICLOFENAC [Concomitant]
     Active Substance: DICLOFENAC
     Dosage: 50 MG, BID
  5. LAXATIVES [Concomitant]
     Active Substance: UNSPECIFIED INGREDIENT
  6. TARGIN [Suspect]
     Active Substance: NALOXONE HYDROCHLORIDE\OXYCODONE HYDROCHLORIDE
     Indication: PRODUCT USED FOR UNKNOWN INDICATION
     Dosage: 80/40MG (40/20MG BD)
     Route: 048
     Dates: end: 20150904
  7. OXYCONTIN [Suspect]
     Active Substance: OXYCODONE HYDROCHLORIDE
     Indication: PRODUCT USED FOR UNKNOWN INDICATION
     Dosage: 40 MG, BID
     Route: 048
     Dates: end: 20150904
  8. AMITRIPTYLINE [Concomitant]
     Active Substance: AMITRIPTYLINE
     Dosage: 25 MG, NOCTE
  9. MORPHINE SULFATE. [Suspect]
     Active Substance: MORPHINE SULFATE
     Indication: PAIN
     Dosage: 90 MG, DAILY
     Route: 058
     Dates: start: 201509
  10. METHADONE [Suspect]
     Active Substance: METHADONE HYDROCHLORIDE
     Indication: PRODUCT USED FOR UNKNOWN INDICATION
     Dosage: 35 MG, DAILY (15MG MANE AND 20MG NOCTE)
     Route: 048
     Dates: start: 201509, end: 201509
  11. PARACETAMOL [Concomitant]
     Active Substance: ACETAMINOPHEN
     Dosage: 1 G, QID
  12. MORPHINE SULFATE. [Suspect]
     Active Substance: MORPHINE SULFATE
     Dosage: 20 MG, DAILY
     Route: 058
     Dates: start: 201509
  13. MORPHINE SULFATE. [Suspect]
     Active Substance: MORPHINE SULFATE
     Dosage: 60 MG, DAILY
     Route: 058
     Dates: start: 201509
  14. DEXAMETHASONE. [Concomitant]
     Active Substance: DEXAMETHASONE
     Dosage: 4 MG, DAILY

REACTIONS (7)
  - Disease progression [Fatal]
  - Respiratory rate decreased [Unknown]
  - Drug withdrawal syndrome [Unknown]
  - Somnolence [Unknown]
  - Malignant neoplasm progression [None]
  - Chondrosarcoma metastatic [None]
  - Myoclonus [Unknown]

NARRATIVE: CASE EVENT DATE: 20150905
